FAERS Safety Report 8100392-6 (Version None)
Quarter: 2012Q1

REPORT INFORMATION
  Report Type: 
  Country: None (occurrence: None)
  Receive Date: 20120129
  Receipt Date: 20111128
  Transmission Date: 20120608
  Serious: No
  Sender: FDA-Public Use
  Company Number: US-ABBOTT-11P-163-0878023-00

PATIENT
  Age: 61 Year
  Sex: Male

DRUGS (3)
  1. ADVAIR DISKUS 100/50 [Concomitant]
     Indication: ASTHMA
  2. HUMIRA [Suspect]
     Indication: CROHN'S DISEASE
     Dates: start: 20080101
  3. CHOLESTERATE [Concomitant]
     Indication: GASTROINTESTINAL DISORDER
     Dosage: DAILY

REACTIONS (1)
  - INJECTION SITE HAEMORRHAGE [None]
